FAERS Safety Report 26175587 (Version 1)
Quarter: 2025Q4

REPORT INFORMATION
  Report Type: Spontaneous
  Country: US (occurrence: US)
  Receive Date: 20251218
  Receipt Date: 20251218
  Transmission Date: 20260117
  Serious: Yes (Hospitalization, Other)
  Sender: PURDUE
  Company Number: US-PURDUE-USA-2025-0323065

PATIENT
  Age: 70 Year
  Sex: Male

DRUGS (4)
  1. DEXTROAMPHETAMINE SACCHARATE, AMPHETAMINE ASPARTATE, DEXTROAMPHETAMINE [Suspect]
     Active Substance: AMPHETAMINE ASPARTATE\AMPHETAMINE SULFATE\DEXTROAMPHETAMINE SACCHARATE\DEXTROAMPHETAMINE SULFATE
     Indication: Product used for unknown indication
     Dosage: UNK
     Route: 048
  2. BUPRENORPHINE [Suspect]
     Active Substance: BUPRENORPHINE
     Indication: Product used for unknown indication
     Dosage: UNK
     Route: 065
  3. HEROIN [Suspect]
     Active Substance: DIAMORPHINE
     Indication: Product used for unknown indication
     Dosage: 1 GRAM, DAILY
     Route: 065
  4. COCAINE [Suspect]
     Active Substance: COCAINE
     Indication: Product used for unknown indication
     Dosage: UNK
     Route: 065

REACTIONS (13)
  - Pneumonia aspiration [Unknown]
  - Fall [Unknown]
  - Unresponsive to stimuli [Unknown]
  - Hypernatraemia [Unknown]
  - Drug abuse [Unknown]
  - Hypophagia [Unknown]
  - Mental status changes [Recovering/Resolving]
  - Diarrhoea [Unknown]
  - Hypertension [Not Recovered/Not Resolved]
  - Lethargy [Unknown]
  - Delirium [Unknown]
  - Aggression [Not Recovered/Not Resolved]
  - Drug screen positive [Unknown]
